FAERS Safety Report 24670523 (Version 1)
Quarter: 2024Q4

REPORT INFORMATION
  Report Type: Spontaneous
  Country: US (occurrence: US)
  Receive Date: 20241127
  Receipt Date: 20241127
  Transmission Date: 20250115
  Serious: No
  Sender: INCYTE
  Company Number: US-INCYTE CORPORATION-2024IN012378

PATIENT

DRUGS (1)
  1. JAKAFI [Suspect]
     Active Substance: RUXOLITINIB
     Indication: Myelofibrosis
     Dosage: 10 MILLIGRAM, BID
     Route: 048

REACTIONS (7)
  - Stress fracture [Unknown]
  - Blood cholesterol increased [Unknown]
  - Bone density decreased [Unknown]
  - Back pain [Unknown]
  - Arthritis [Unknown]
  - Product dose omission issue [Unknown]
  - Haemoglobin decreased [Unknown]
